FAERS Safety Report 9230079 (Version 1)
Quarter: 2013Q2

REPORT INFORMATION
  Report Type: Spontaneous
  Country: US (occurrence: None)
  Receive Date: 20130412
  Receipt Date: 20130412
  Transmission Date: 20140414
  Serious: Yes (Other)
  Sender: FDA-Public Use
  Company Number: None

PATIENT
  Age: 50 Year
  Sex: Female
  Weight: 52.16 kg

DRUGS (2)
  1. METOPROLOL [Suspect]
     Indication: BLOOD PRESSURE
     Route: 048
  2. ATORVASTATIN [Suspect]
     Indication: BLOOD CHOLESTEROL
     Route: 048

REACTIONS (5)
  - Pain [None]
  - Sleep disorder [None]
  - Convulsion [None]
  - Headache [None]
  - Loss of consciousness [None]
